FAERS Safety Report 6319102-8 (Version None)
Quarter: 2009Q3

REPORT INFORMATION
  Report Type: 
  Country: None (occurrence: None)
  Receive Date: 20090821
  Receipt Date: 20080804
  Transmission Date: 20100115
  Serious: No
  Sender: FDA-Public Use
  Company Number: US-ABBOTT-08P-163-0467986-00

PATIENT
  Sex: Female
  Weight: 83.536 kg

DRUGS (5)
  1. NIASPAN [Suspect]
     Indication: BLOOD TRIGLYCERIDES INCREASED
     Route: 048
     Dates: start: 20080521
  2. NIASPAN [Suspect]
     Indication: HIGH DENSITY LIPOPROTEIN DECREASED
  3. METFORMIN [Concomitant]
     Indication: BLOOD TRIGLYCERIDES INCREASED
     Route: 048
     Dates: start: 20070101
  4. SERTRALINE [Concomitant]
     Indication: MUSCLE SPASMS
     Route: 048
     Dates: start: 20040101
  5. IBEUPROPH [Concomitant]
     Indication: MUSCLE SPASMS
     Route: 048
     Dates: start: 20040101

REACTIONS (1)
  - SOMNOLENCE [None]
